FAERS Safety Report 11038433 (Version 1)
Quarter: 2015Q2

REPORT INFORMATION
  Report Type: Spontaneous
  Country: US (occurrence: US)
  Receive Date: 20150416
  Receipt Date: 20150416
  Transmission Date: 20150821
  Serious: No
  Sender: FDA-Public Use
  Company Number: US-ELI_LILLY_AND_COMPANY-US201503009201

PATIENT
  Age: 40 Year
  Sex: Male

DRUGS (2)
  1. STRATTERA [Suspect]
     Active Substance: ATOMOXETINE HYDROCHLORIDE
     Indication: ATTENTION DEFICIT/HYPERACTIVITY DISORDER
     Dosage: 160 MG, UNKNOWN
     Route: 065
     Dates: start: 20030324
  2. PROVIGIL [Concomitant]
     Active Substance: MODAFINIL
     Dosage: UNK, UNKNOWN
     Route: 065

REACTIONS (2)
  - Abnormal behaviour [Unknown]
  - Proctalgia [Unknown]
